FAERS Safety Report 5911062-4 (Version None)
Quarter: 2008Q4

REPORT INFORMATION
  Report Type: 
  Country: None (occurrence: None)
  Receive Date: 20081007
  Receipt Date: 20071120
  Transmission Date: 20090506
  Serious: No
  Sender: FDA-Public Use
  Company Number: US-BRISTOL-MYERS SQUIBB COMPANY-13828983

PATIENT
  Age: 71 Year
  Sex: Female
  Weight: 73 kg

DRUGS (3)
  1. AVAPRO [Suspect]
     Dosage: INITIATED THERAPY AT 75 MG ON 22-MAR-2007 UNTIL 07-JUN-2007 WHEN DOSE WAS INCREASED TO 150 MG.
     Route: 048
     Dates: start: 20070608
  2. WARFARIN SODIUM [Concomitant]
  3. LOPRESSOR [Concomitant]

REACTIONS (2)
  - DIARRHOEA [None]
  - FAECES DISCOLOURED [None]
